FAERS Safety Report 12457365 (Version 3)
Quarter: 2016Q3

REPORT INFORMATION
  Report Type: Report from Study
  Country: JP (occurrence: JP)
  Receive Date: 20160610
  Receipt Date: 20160726
  Transmission Date: 20161109
  Serious: Yes (Hospitalization, Other)
  Sender: FDA-Public Use
  Company Number: JP-BRISTOL-MYERS SQUIBB COMPANY-BMS-2016-045429

PATIENT
  Age: 59 Year
  Sex: Female

DRUGS (1)
  1. IPILIMUMAB [Suspect]
     Active Substance: IPILIMUMAB
     Indication: MALIGNANT MELANOMA
     Dosage: 150 MG, QWK
     Route: 041
     Dates: start: 20160510

REACTIONS (5)
  - Intra-abdominal haemorrhage [Recovered/Resolved]
  - Metastases to adrenals [Unknown]
  - Therapeutic embolisation [Unknown]
  - Anaemia [Recovered/Resolved]
  - Vomiting [Recovered/Resolved]

NARRATIVE: CASE EVENT DATE: 20160522
